FAERS Safety Report 5465488-6 (Version None)
Quarter: 2007Q3

REPORT INFORMATION
  Report Type: 
  Country: None (occurrence: None)
  Receive Date: 20070920
  Receipt Date: 20070905
  Transmission Date: 20080115
  Serious: Yes (Other)
  Sender: FDA-Public Use
  Company Number: L07-USA-03849-01

PATIENT
  Age: 19 Year
  Sex: Female

DRUGS (1)
  1. ESCITALOPRAM OXALATE [Suspect]
     Dosage: 36 TABLET ONCE

REACTIONS (5)
  - HYPERVENTILATION [None]
  - LETHARGY [None]
  - OVERDOSE [None]
  - SOMNOLENCE [None]
  - TACHYPNOEA [None]
